FAERS Safety Report 5574263-3 (Version None)
Quarter: 2007Q4

REPORT INFORMATION
  Report Type: 
  Country: None (occurrence: None)
  Receive Date: 20071227
  Receipt Date: 20071218
  Transmission Date: 20080405
  Serious: Yes (Hospitalization)
  Sender: FDA-Public Use
  Company Number: FR-ABBOTT-07P-056-0430544-00

PATIENT
  Sex: Male

DRUGS (2)
  1. PEDIAZOLE [Suspect]
     Indication: TONSILLITIS
     Route: 048
     Dates: start: 20070509, end: 20070516
  2. AUGMENTIN '250' [Suspect]
     Indication: TONSILLITIS
     Route: 048
     Dates: start: 20070507, end: 20070509

REACTIONS (2)
  - HEADACHE [None]
  - PAPILLOEDEMA [None]
